FAERS Safety Report 5155080-5 (Version None)
Quarter: 2006Q4

REPORT INFORMATION
  Report Type: 
  Country: None (occurrence: None)
  Receive Date: 20061121
  Receipt Date: 20041203
  Transmission Date: 20070319
  Serious: Yes (Other)
  Sender: FDA-Public Use
  Company Number: GB-GLAXOSMITHKLINE-B0359435A

PATIENT
  Sex: Female

DRUGS (3)
  1. SEROXAT [Suspect]
     Indication: DRUG USE FOR UNKNOWN INDICATION
     Dosage: 30MG PER DAY
     Route: 065
     Dates: start: 19930101, end: 20000101
  2. ZOPICLONE [Suspect]
     Dosage: 7TAB PER DAY
  3. THIORIDAZINE HCL [Suspect]
     Dosage: 14TAB PER DAY

REACTIONS (4)
  - COMPLETED SUICIDE [None]
  - DRUG WITHDRAWAL SYNDROME [None]
  - MENTAL STATUS CHANGES [None]
  - OVERDOSE [None]
